FAERS Safety Report 12366718 (Version 1)
Quarter: 2016Q2

REPORT INFORMATION
  Report Type: Spontaneous
  Country: TR (occurrence: TR)
  Receive Date: 20160513
  Receipt Date: 20160513
  Transmission Date: 20160815
  Serious: Yes (Other)
  Sender: FDA-Public Use
  Company Number: TR-PERRIGO-16TR015857

PATIENT
  Age: 45 Year
  Sex: Male

DRUGS (2)
  1. INDOMETHACIN. [Suspect]
     Active Substance: INDOMETHACIN
     Indication: ANKYLOSING SPONDYLITIS
     Dosage: 150 MG, QD
     Route: 048
  2. SULFASALAZINE. [Concomitant]
     Active Substance: SULFASALAZINE
     Indication: ANKYLOSING SPONDYLITIS
     Dosage: 1 G, QD
     Route: 048

REACTIONS (8)
  - Hallucinations, mixed [Recovered/Resolved]
  - Irritability [Recovered/Resolved]
  - Substance-induced psychotic disorder [Recovered/Resolved]
  - Soliloquy [Recovered/Resolved]
  - Suspiciousness [Recovered/Resolved]
  - Logorrhoea [Recovered/Resolved]
  - Hypervigilance [Recovered/Resolved]
  - Delusion [Recovered/Resolved]
